FAERS Safety Report 4363440-5 (Version None)
Quarter: 2004Q2

REPORT INFORMATION
  Report Type: 
  Country: None (occurrence: None)
  Receive Date: 20040524
  Receipt Date: 20040512
  Transmission Date: 20050107
  Serious: Yes (Other)
  Sender: FDA-Public Use
  Company Number: GB-GLAXOSMITHKLINE-B0332749A

PATIENT
  Age: 35 Year
  Sex: Female

DRUGS (3)
  1. ZYBAN [Suspect]
     Dosage: 150MG UNKNOWN
     Route: 048
     Dates: start: 20040423, end: 20040429
  2. PROPRANOLOL [Concomitant]
     Indication: ANXIETY
     Dosage: 80MG PER DAY
     Route: 048
     Dates: start: 20040408
  3. ZOPICLONE [Concomitant]
     Indication: INSOMNIA
     Dosage: 3.75MG AS REQUIRED
     Route: 048
     Dates: start: 20040408

REACTIONS (5)
  - DIZZINESS [None]
  - GINGIVAL PAIN [None]
  - HEART RATE INCREASED [None]
  - INSOMNIA [None]
  - TINNITUS [None]
